FAERS Safety Report 5735514-5 (Version None)
Quarter: 2008Q2

REPORT INFORMATION
  Report Type: 
  Country: None (occurrence: None)
  Receive Date: 20080512
  Receipt Date: 20080502
  Transmission Date: 20081010
  Serious: Yes (Other)
  Sender: FDA-Public Use
  Company Number: BR-PFIZER INC-2007071666

PATIENT
  Sex: Female

DRUGS (4)
  1. DIABINESE [Suspect]
     Indication: DIABETES MELLITUS
     Route: 048
  2. ALL OTHER THERAPEUTIC PRODUCTS [Concomitant]
  3. BROMAZEPAM [Concomitant]
     Route: 048
  4. VITAMINS [Concomitant]

REACTIONS (2)
  - CEREBROVASCULAR ACCIDENT [None]
  - DEPRESSION [None]
